FAERS Safety Report 9978367 (Version 1)
Quarter: 2014Q1

REPORT INFORMATION
  Report Type: Report from Study
  Country: US (occurrence: US)
  Receive Date: 20140306
  Receipt Date: 20140306
  Transmission Date: 20141002
  Serious: No
  Sender: FDA-Public Use
  Company Number: US-ABBVIE-13P-163-1173321-00

PATIENT
  Age: 68 Year
  Sex: Female

DRUGS (18)
  1. HUMIRA [Suspect]
     Indication: RHEUMATOID ARTHRITIS
     Dates: start: 20130803
  2. HUMIRA [Suspect]
     Dates: start: 20131012
  3. METHOTREXATE [Concomitant]
     Indication: RHEUMATOID ARTHRITIS
  4. FOLIC ACID [Concomitant]
     Indication: PRODUCT USED FOR UNKNOWN INDICATION
  5. OXAPROZIN [Concomitant]
     Indication: ARTHRALGIA
  6. FOSAMAX [Concomitant]
     Indication: OSTEOPOROSIS
  7. LIPITOR [Concomitant]
     Indication: BLOOD CHOLESTEROL INCREASED
  8. PATANASE [Concomitant]
     Indication: HYPERSENSITIVITY
     Dosage: TWO SPRAYS
  9. TRIAMCINOLONE [Concomitant]
     Indication: PRODUCT USED FOR UNKNOWN INDICATION
     Dosage: TWO SPRAYS
  10. TRAZODONE [Concomitant]
     Indication: INSOMNIA
     Dosage: AT BEDTIME
  11. KRILL OIL [Concomitant]
     Indication: PRODUCT USED FOR UNKNOWN INDICATION
  12. ZYRTEC-D [Concomitant]
     Indication: HYPERSENSITIVITY
     Dosage: ONE TO TWO TIMES DAILY
  13. MULTIVITAMIN [Concomitant]
     Indication: PRODUCT USED FOR UNKNOWN INDICATION
  14. ASPIRIN [Concomitant]
     Indication: ANTICOAGULANT THERAPY
     Dosage: LOW DOSE
  15. OCUVITE [Concomitant]
     Indication: PRODUCT USED FOR UNKNOWN INDICATION
  16. METAMUCIL [Concomitant]
     Indication: CONSTIPATION PROPHYLAXIS
     Dosage: DRINKS GLASS OF METAMUCIL
  17. TUMS [Concomitant]
     Indication: BLOOD CALCIUM
     Dosage: TWO
  18. ANTIBIOTICS [Concomitant]
     Indication: PRODUCT USED FOR UNKNOWN INDICATION

REACTIONS (5)
  - Micrographic skin surgery [Not Recovered/Not Resolved]
  - Urinary tract disorder [Not Recovered/Not Resolved]
  - Urine odour abnormal [Recovering/Resolving]
  - Basal cell carcinoma [Not Recovered/Not Resolved]
  - Urinary tract infection [Not Recovered/Not Resolved]
